FAERS Safety Report 10931574 (Version 1)
Quarter: 2015Q1

REPORT INFORMATION
  Report Type: Report from Study
  Country: NL (occurrence: NL)
  Receive Date: 20150319
  Receipt Date: 20150319
  Transmission Date: 20150721
  Serious: Yes (Hospitalization)
  Sender: FDA-Public Use
  Company Number: NL-ABBVIE-15P-114-1363037-00

PATIENT
  Age: 70 Year
  Sex: Male

DRUGS (1)
  1. DUODOPA [Suspect]
     Active Substance: CARBIDOPA\LEVODOPA
     Indication: PARKINSON^S DISEASE
     Dosage: 20/5MG/ML
     Route: 050

REACTIONS (10)
  - Nervousness [Unknown]
  - Surgical failure [Unknown]
  - Device issue [Unknown]
  - Personality change [Unknown]
  - Anger [Unknown]
  - Drug ineffective [Unknown]
  - Impaired healing [Unknown]
  - Parkinson^s disease [Not Recovered/Not Resolved]
  - Device deployment issue [Unknown]
  - Fear [Not Recovered/Not Resolved]
